FAERS Safety Report 8811524 (Version 1)
Quarter: 2012Q4

REPORT INFORMATION
  Report Type: Spontaneous
  Country: US (occurrence: None)
  Receive Date: 20120921
  Receipt Date: 20120921
  Transmission Date: 20130627
  Serious: Yes (Other)
  Sender: FDA-Public Use
  Company Number: US-1194256

PATIENT
  Sex: Female

DRUGS (1)
  1. SYSTANE EYEDROPS [Suspect]
     Route: 047
     Dates: start: 2012, end: 2012

REACTIONS (3)
  - Eye haemorrhage [None]
  - Eye irritation [None]
  - Instillation site pain [None]
